FAERS Safety Report 9690485 (Version 1)
Quarter: 2013Q4

REPORT INFORMATION
  Report Type: Spontaneous
  Country: FR (occurrence: FR)
  Receive Date: 20131115
  Receipt Date: 20131115
  Transmission Date: 20140711
  Serious: Yes (Hospitalization)
  Sender: FDA-Public Use
  Company Number: FR-PFIZER INC-2013319994

PATIENT
  Age: 65 Year
  Sex: Male

DRUGS (13)
  1. METHOTREXATE [Suspect]
     Indication: BURKITT^S LYMPHOMA
     Dosage: 15 MG, 1X/DAY
     Route: 037
     Dates: start: 20131008, end: 20131008
  2. METHOTREXATE [Suspect]
     Dosage: 15 MG, 1X/DAY
     Route: 037
     Dates: start: 20131016, end: 20131016
  3. METHOTREXATE [Suspect]
     Dosage: 15 MG, 1X/DAY
     Route: 037
     Dates: start: 20131019, end: 20131019
  4. DEPO-MEDROL [Suspect]
     Indication: BURKITT^S LYMPHOMA
     Dosage: 40 MG, 1X/DAY
     Route: 037
     Dates: start: 20131008, end: 20131008
  5. DEPO-MEDROL [Suspect]
     Dosage: 40 MG, 1X/DAY
     Route: 037
     Dates: start: 20131016, end: 20131016
  6. DEPO-MEDROL [Suspect]
     Dosage: 40 MG, 1X/DAY
     Route: 037
     Dates: start: 20131019, end: 20131019
  7. METHOTREXATE [Concomitant]
     Indication: BURKITT^S LYMPHOMA
     Dosage: 6 G, 1X/DAY
     Route: 042
     Dates: start: 20131015, end: 20131015
  8. ENDOXAN [Concomitant]
     Indication: BURKITT^S LYMPHOMA
     Dosage: UNK
     Dates: start: 20131008
  9. VINCRISTINE [Concomitant]
     Indication: BURKITT^S LYMPHOMA
     Dosage: UNK
     Dates: start: 20131008, end: 20131015
  10. VINCRISTINE [Concomitant]
     Dosage: UNK
     Route: 041
     Dates: start: 20131015
  11. SOLUPRED [Concomitant]
     Indication: BURKITT^S LYMPHOMA
     Dosage: UNK
     Dates: start: 20131008, end: 20131014
  12. FASTURTEC [Concomitant]
     Indication: BURKITT^S LYMPHOMA
     Dosage: UNK
     Dates: start: 20131015
  13. MABTHERA [Concomitant]
     Indication: BURKITT^S LYMPHOMA
     Dosage: UNK
     Route: 041
     Dates: start: 20131015, end: 20131015

REACTIONS (3)
  - Encephalopathy [Recovered/Resolved]
  - Confusional state [Recovered/Resolved]
  - Muscular weakness [Recovered/Resolved]
